FAERS Safety Report 13464478 (Version 1)
Quarter: 2017Q2

REPORT INFORMATION
  Report Type: Spontaneous
  Country: US (occurrence: US)
  Receive Date: 20170420
  Receipt Date: 20170420
  Transmission Date: 20170830
  Serious: Yes (Other)
  Sender: FDA-Public Use
  Company Number: US-ROCHE-702716

PATIENT
  Age: 19 Year
  Sex: Male
  Weight: 79.4 kg

DRUGS (1)
  1. ACCUTANE [Suspect]
     Active Substance: ISOTRETINOIN
     Indication: ACNE
     Dosage: APRROXIMATELY 4 TIMES
     Route: 065
     Dates: start: 199309, end: 199402

REACTIONS (4)
  - Inflammatory bowel disease [Unknown]
  - Colitis ulcerative [Unknown]
  - Colitis [Unknown]
  - Emotional distress [Unknown]

NARRATIVE: CASE EVENT DATE: 199703
